FAERS Safety Report 5522912-8 (Version None)
Quarter: 2007Q4

REPORT INFORMATION
  Report Type: 
  Country: None (occurrence: None)
  Receive Date: 20071116
  Receipt Date: 20071101
  Transmission Date: 20080405
  Serious: No
  Sender: FDA-Public Use
  Company Number: TPA2007A02251

PATIENT
  Age: 41 Year
  Sex: Female
  Weight: 58.9676 kg

DRUGS (7)
  1. ROZEREM [Suspect]
     Indication: INITIAL INSOMNIA
     Dosage: 8 MG, QHS, PER ORAL ; 1/2 TABLET, QHS, PER ORAL
     Route: 048
     Dates: start: 20061101, end: 20061101
  2. ROZEREM [Suspect]
     Indication: INITIAL INSOMNIA
     Dosage: 8 MG, QHS, PER ORAL ; 1/2 TABLET, QHS, PER ORAL
     Route: 048
     Dates: start: 20070901
  3. AMITIZA [Suspect]
     Indication: INTESTINAL FUNCTIONAL DISORDER
     Dosage: 24 MCG, AS REQUIRED, PER ORAL ; 24 MCG, 2 IN 1 D, PER ORAL
     Route: 048
     Dates: start: 20060301, end: 20060301
  4. AMITIZA [Suspect]
     Indication: INTESTINAL FUNCTIONAL DISORDER
     Dosage: 24 MCG, AS REQUIRED, PER ORAL ; 24 MCG, 2 IN 1 D, PER ORAL
     Route: 048
     Dates: start: 20070301
  5. SYNTHROID [Concomitant]
  6. FLONASE (FLUTICASONE PROPIONATE) (NASAL DROPS (INCLUDING NASAL SPRAY)) [Concomitant]
  7. ZYRTEC [Concomitant]

REACTIONS (11)
  - ABDOMINAL DISCOMFORT [None]
  - ABDOMINAL DISTENSION [None]
  - DIARRHOEA [None]
  - DYSPEPSIA [None]
  - ERUCTATION [None]
  - FEELING ABNORMAL [None]
  - GASTRIC DISORDER [None]
  - INCORRECT DOSE ADMINISTERED [None]
  - LETHARGY [None]
  - NAUSEA [None]
  - SOMNOLENCE [None]
